FAERS Safety Report 12226070 (Version 1)
Quarter: 2016Q1

REPORT INFORMATION
  Report Type: Spontaneous
  Country: IT (occurrence: IT)
  Receive Date: 20160331
  Receipt Date: 20160331
  Transmission Date: 20160526
  Serious: Yes (Hospitalization)
  Sender: FDA-Public Use
  Company Number: IT-DEP_13944_2016

PATIENT
  Age: 68 Year
  Sex: Male
  Weight: 69 kg

DRUGS (7)
  1. PLACEBO [Suspect]
     Active Substance: UNSPECIFIED INGREDIENT
     Indication: PRODUCT USED FOR UNKNOWN INDICATION
     Route: 048
     Dates: start: 20151105, end: 20151112
  2. GABAPENTIN. [Concomitant]
     Active Substance: GABAPENTIN
     Indication: CANCER PAIN
     Dosage: DF
     Route: 048
     Dates: start: 20151021, end: 20151112
  3. MS CONTIN [Suspect]
     Active Substance: MORPHINE SULFATE
     Dosage: 2 TABLETS 10MG + 1 TABLET 30MG
     Route: 048
     Dates: start: 20151105, end: 20151110
  4. PLACEBO [Concomitant]
     Active Substance: UNSPECIFIED INGREDIENT
     Route: 048
     Dates: start: 20151105, end: 20151112
  5. ABSTRAL [Suspect]
     Active Substance: FENTANYL CITRATE
     Indication: CANCER PAIN
     Dosage: QD AS NEEDED
     Route: 048
     Dates: start: 20151021, end: 20151112
  6. PECFENT [Suspect]
     Active Substance: FENTANYL CITRATE
     Indication: CANCER PAIN
     Dosage: 100 MCG/1BOTTLE; PRN, 1 PUFF EVERY THREE DAYS AT BEGINNING
     Route: 055
     Dates: start: 20151009, end: 20151021
  7. MS CONTIN [Suspect]
     Active Substance: MORPHINE SULFATE
     Indication: CANCER PAIN
     Dosage: 4 TABLETS 10MG + 1 TABLET 30MG
     Route: 048
     Dates: start: 20151110

REACTIONS (5)
  - Respiratory depression [Unknown]
  - Hyperhidrosis [Unknown]
  - Overdose [None]
  - Oxygen saturation decreased [None]
  - Sopor [Unknown]

NARRATIVE: CASE EVENT DATE: 20151112
